FAERS Safety Report 19070218 (Version 1)
Quarter: 2021Q1

REPORT INFORMATION
  Report Type: Spontaneous
  Country: US (occurrence: US)
  Receive Date: 20210329
  Receipt Date: 20210329
  Transmission Date: 20210420
  Serious: Yes (Other)
  Sender: FDA-Public Use
  Company Number: US-ELI_LILLY_AND_COMPANY-US202103007867

PATIENT
  Age: 25 Year
  Sex: Female

DRUGS (1)
  1. CYMBALTA [Suspect]
     Active Substance: DULOXETINE HYDROCHLORIDE
     Indication: PRODUCT USED FOR UNKNOWN INDICATION
     Dosage: UNK UNK, UNKNOWN
     Route: 065
     Dates: start: 201909, end: 202009

REACTIONS (8)
  - Withdrawal syndrome [Recovering/Resolving]
  - Liver injury [Not Recovered/Not Resolved]
  - Neurological symptom [Recovering/Resolving]
  - Renal disorder [Not Recovered/Not Resolved]
  - Hemiplegia [Recovering/Resolving]
  - Seizure [Not Recovered/Not Resolved]
  - Urinary incontinence [Recovering/Resolving]
  - Psychogenic seizure [Not Recovered/Not Resolved]
